FAERS Safety Report 8386248-2 (Version None)
Quarter: 2012Q2

REPORT INFORMATION
  Report Type: 
  Country: None (occurrence: None)
  Receive Date: 20120525
  Receipt Date: 20120521
  Transmission Date: 20120825
  Serious: Yes (Other)
  Sender: FDA-Public Use
  Company Number: US-PFIZER INC-2012117508

PATIENT
  Sex: Male
  Weight: 83.9 kg

DRUGS (5)
  1. COUMADIN [Concomitant]
     Indication: HEART RATE IRREGULAR
     Dosage: UNK
  2. LYRICA [Suspect]
     Dosage: 400 MG, 2X/DAY
     Route: 048
     Dates: start: 20120401
  3. VICODIN [Concomitant]
  4. LYRICA [Suspect]
     Indication: HERPES ZOSTER
     Dosage: 200MG IN THE MORNING AND ONE CAPSULE OF 200MG AND 100MG AT NIGHT
     Route: 048
     Dates: start: 20120301
  5. VICODIN [Concomitant]
     Indication: PAIN
     Dosage: UNK

REACTIONS (8)
  - RENAL PAIN [None]
  - WEIGHT DECREASED [None]
  - PAIN [None]
  - BURNING SENSATION [None]
  - BACK PAIN [None]
  - ABDOMINAL PAIN [None]
  - INCORRECT DOSE ADMINISTERED [None]
  - SWELLING [None]
